FAERS Safety Report 11537599 (Version 1)
Quarter: 2015Q3

REPORT INFORMATION
  Report Type: Report from Study
  Country: US (occurrence: US)
  Receive Date: 20150922
  Receipt Date: 20150922
  Transmission Date: 20151125
  Serious: No
  Sender: FDA-Public Use
  Company Number: GXBR2015US001791

PATIENT
  Sex: Female

DRUGS (2)
  1. GLATOPA [Suspect]
     Active Substance: GLATIRAMER ACETATE
     Indication: PRODUCT USED FOR UNKNOWN INDICATION
     Dosage: 20 MG, QD
     Route: 065
     Dates: start: 20150722
  2. CLARITIN [Concomitant]
     Active Substance: LORATADINE
     Dosage: UNK DF, UNK

REACTIONS (6)
  - Injection site bruising [Unknown]
  - Injection site swelling [Unknown]
  - Injection site induration [Unknown]
  - Injection site urticaria [Unknown]
  - Injection site mass [Unknown]
  - Injection site erythema [Unknown]
